FAERS Safety Report 4358675-1 (Version None)
Quarter: 2004Q2

REPORT INFORMATION
  Report Type: 
  Country: None (occurrence: None)
  Receive Date: 20040511
  Receipt Date: 20040421
  Transmission Date: 20050107
  Serious: Yes (Disabling)
  Sender: FDA-Public Use
  Company Number: 2004199918FR

PATIENT
  Age: 26 Year
  Sex: Female

DRUGS (2)
  1. TRELSTAR LA 11.25MG(TRIPTORELIN PAMOATE) POWDER, STERILE, 11.25MG [Suspect]
     Indication: ENDOMETRIOSIS
     Dosage: 11.25 MG/3 MONTHS, 1ST INJ., INTRAMUSCULAR
     Route: 030
     Dates: start: 20030605, end: 20030605
  2. TRELSTAR DEPOT [Suspect]
     Indication: ENDOMETRIOSIS
     Dosage: 3 MG, 28 DAYS, INTRAMUSCULAR
     Route: 030
     Dates: start: 20031010, end: 20031010

REACTIONS (8)
  - CONDITION AGGRAVATED [None]
  - DIPLOPIA [None]
  - HEADACHE [None]
  - KERATOCONJUNCTIVITIS SICCA [None]
  - LACRIMAL DISORDER [None]
  - MYOPIA [None]
  - VISION BLURRED [None]
  - VISUAL ACUITY REDUCED [None]
